FAERS Safety Report 9536990 (Version 3)
Quarter: 2014Q1

REPORT INFORMATION
  Report Type: Spontaneous
  Country: BR (occurrence: BR)
  Receive Date: 20130919
  Receipt Date: 20140307
  Transmission Date: 20141002
  Serious: Yes (Other)
  Sender: FDA-Public Use
  Company Number: BR-ABBVIE-13P-020-1148939-00

PATIENT
  Age: 24 Year
  Sex: Female

DRUGS (2)
  1. DEPAKENE [Suspect]
     Indication: POST-TRAUMATIC EPILEPSY
     Dosage: 1 HOUR AFTER MEALS
  2. OXCARBAZEPINE [Concomitant]
     Indication: PRODUCT USED FOR UNKNOWN INDICATION

REACTIONS (7)
  - Convulsion [Recovered/Resolved]
  - Convulsion [Recovered/Resolved]
  - Convulsion [Recovered/Resolved]
  - Vomiting [Recovered/Resolved]
  - Malabsorption [Unknown]
  - Malaise [Unknown]
  - Product physical issue [Unknown]
